FAERS Safety Report 7068384 (Version 2)
Quarter: 2014Q3

REPORT INFORMATION
  Report Type: Spontaneous
  Country: US (occurrence: None)
  Receive Date: 20090724
  Receipt Date: 20140716
  Transmission Date: 20150326
  Serious: Yes (Other)
  Sender: FDA-Public Use
  Company Number: 2009S1005469

PATIENT
  Age: 74 Year
  Sex: Male
  Weight: 67 kg

DRUGS (8)
  1. TOPROL (METOPROLOL SUCCINATE) [Concomitant]
  2. CRESTOR [Concomitant]
     Active Substance: ROSUVASTATIN CALCIUM
  3. DILTIAZEM (DILTIAZEM) [Concomitant]
  4. PHOSPHO-SODA [Suspect]
     Active Substance: SODIUM PHOSPHATE, DIBASIC\SODIUM PHOSPHATE, MONOBASIC
     Indication: COLONOSCOPY
     Dosage: TOTAL, ORAL90ML.
     Dates: start: 20081022, end: 20081022
  5. CILOSTAZOL (CILOSTAZOL) [Concomitant]
  6. ASPIRIN (ACETYLSALICYLIC ACID) [Concomitant]
     Active Substance: ASPIRIN
  7. DULCOLAX (BISACODYL) [Suspect]
     Active Substance: BISACODYL
     Indication: COLONOSCOPY
  8. ATACAND [Concomitant]
     Active Substance: CANDESARTAN CILEXETIL

REACTIONS (6)
  - Acute phosphate nephropathy [None]
  - Anaemia [None]
  - Nephropathy [None]
  - Diarrhoea [None]
  - Fatigue [None]
  - Renal failure acute [None]

NARRATIVE: CASE EVENT DATE: 20081106
